FAERS Safety Report 4451879-9 (Version None)
Quarter: 2004Q3

REPORT INFORMATION
  Report Type: 
  Country: None (occurrence: None)
  Receive Date: 20040915
  Receipt Date: 20040915
  Transmission Date: 20050211
  Serious: Yes (Life-Threatening, Hospitalization)
  Sender: FDA-Public Use
  Company Number: None

PATIENT
  Age: 83 Year
  Sex: Male
  Weight: 87.5 kg

DRUGS (3)
  1. WARFARIN [Suspect]
  2. DIGOXIN [Concomitant]
  3. AMIODARONE HCL [Concomitant]

REACTIONS (1)
  - INTERNATIONAL NORMALISED RATIO INCREASED [None]
